FAERS Safety Report 8417145-1 (Version None)
Quarter: 2012Q2

REPORT INFORMATION
  Report Type: 
  Country: None (occurrence: None)
  Receive Date: 20120606
  Receipt Date: 20120529
  Transmission Date: 20120825
  Serious: Yes (Death)
  Sender: FDA-Public Use
  Company Number: US-ACTELION-A-US2012-66462

PATIENT

DRUGS (5)
  1. SPIRONOLACTONE [Concomitant]
  2. ASPIRIN [Concomitant]
  3. DIGOXIN [Concomitant]
  4. CALCIUM CHANNEL BLOCKERS [Concomitant]
  5. TRACLEER [Suspect]
     Indication: PULMONARY ARTERIAL HYPERTENSION
     Dosage: UNK
     Route: 048
     Dates: start: 20120120, end: 20120301

REACTIONS (1)
  - PULMONARY ARTERIAL HYPERTENSION [None]
